FAERS Safety Report 6168002-5 (Version None)
Quarter: 2009Q2

REPORT INFORMATION
  Report Type: 
  Country: None (occurrence: None)
  Receive Date: 20090427
  Receipt Date: 20090420
  Transmission Date: 20091009
  Serious: Yes (Death, Hospitalization)
  Sender: FDA-Public Use
  Company Number: GB-ROCHE-564225

PATIENT
  Sex: Female

DRUGS (11)
  1. CAPECITABINE [Suspect]
     Route: 048
     Dates: start: 20071129
  2. ERLOTINIB [Suspect]
     Route: 048
     Dates: start: 20071129
  3. BEVACIZUMAB [Suspect]
     Route: 042
     Dates: start: 20071129
  4. GEMCITABINE [Suspect]
     Route: 042
     Dates: start: 20071129
  5. CREON [Concomitant]
  6. LANSOPRAZOLE [Concomitant]
  7. METOCLOPRAMIDE [Concomitant]
  8. ASPIRIN [Concomitant]
  9. BISOPROLOL FUMARATE [Concomitant]
  10. NOVORAPID [Concomitant]
  11. INSULIN GLARGINE [Concomitant]

REACTIONS (6)
  - ABSCESS [None]
  - NAUSEA [None]
  - PANCREATIC CARCINOMA [None]
  - SMALL INTESTINAL OBSTRUCTION [None]
  - VOMITING [None]
  - WOUND COMPLICATION [None]
